FAERS Safety Report 16105527 (Version 2)
Quarter: 2019Q2

REPORT INFORMATION
  Report Type: Spontaneous
  Country: CN (occurrence: CN)
  Receive Date: 20190322
  Receipt Date: 20190412
  Transmission Date: 20190711
  Serious: Yes (Death)
  Sender: FDA-Public Use
  Company Number: CN-BAYER-2019-056464

PATIENT
  Age: 90 Year
  Sex: Male
  Weight: 55 kg

DRUGS (7)
  1. AVELOX [Suspect]
     Active Substance: MOXIFLOXACIN HYDROCHLORIDE
     Indication: PNEUMONIA
     Dosage: 0.4 G, QD
     Route: 041
     Dates: start: 20190201, end: 20190203
  2. FRUCTOSE [Concomitant]
     Active Substance: FRUCTOSE
     Indication: NUTRITIONAL SUPPLEMENTATION
     Route: 048
  3. FRUCTOSE [Concomitant]
     Active Substance: FRUCTOSE
     Indication: CORONARY ARTERY DISEASE
  4. FRUCTOSE [Concomitant]
     Active Substance: FRUCTOSE
     Indication: HYPERTENSION
  5. SALVIANOLATE [Concomitant]
     Active Substance: HERBALS
     Indication: NUTRITIONAL SUPPLEMENTATION
  6. SALVIANOLATE [Concomitant]
     Active Substance: HERBALS
     Indication: CORONARY ARTERY DISEASE
     Route: 048
  7. SALVIANOLATE [Concomitant]
     Active Substance: HERBALS
     Indication: HYPERTENSION

REACTIONS (6)
  - Asphyxia [Fatal]
  - Logorrhoea [None]
  - Illusion [None]
  - Mania [None]
  - Dysphoria [None]
  - Initial insomnia [None]

NARRATIVE: CASE EVENT DATE: 20190203
